FAERS Safety Report 5309300-4 (Version None)
Quarter: 2007Q2

REPORT INFORMATION
  Report Type: 
  Country: None (occurrence: None)
  Receive Date: 20070424
  Receipt Date: 20070424
  Transmission Date: 20071010
  Serious: Yes (Hospitalization)
  Sender: FDA-Public Use
  Company Number: None

PATIENT
  Age: 55 Year
  Sex: Female
  Weight: 54.6 kg

DRUGS (5)
  1. TAXOTERE [Suspect]
     Indication: NON-SMALL CELL LUNG CANCER
     Dosage: 31.2 MG/MS
     Dates: start: 20051006
  2. CARBOPLATIN [Suspect]
     Indication: NON-SMALL CELL LUNG CANCER
     Dosage: 209 MG
     Dates: start: 20051006
  3. ACETAMINOPHEN AND HYDROCODONE BITARTRATE [Concomitant]
  4. KYTRIL [Concomitant]
  5. COMPAZINE [Concomitant]

REACTIONS (4)
  - DEHYDRATION [None]
  - DRUG TOXICITY [None]
  - OESOPHAGITIS [None]
  - ORAL INTAKE REDUCED [None]
